FAERS Safety Report 4560992-7 (Version None)
Quarter: 2005Q1

REPORT INFORMATION
  Report Type: 
  Country: None (occurrence: None)
  Receive Date: 20050126
  Receipt Date: 20040518
  Transmission Date: 20050727
  Serious: No
  Sender: FDA-Public Use
  Company Number: US-BRISTOL-MYERS SQUIBB COMPANY-12589727

PATIENT
  Age: 18 Year
  Sex: Female
  Weight: 73 kg

DRUGS (2)
  1. GLUCOPHAGE [Suspect]
     Indication: DIABETES MELLITUS
     Dosage: 500 MG IN THE AM, 1000 MG IN THE PM
     Route: 048
  2. PRENATAL VITAMINS [Concomitant]

REACTIONS (2)
  - DIABETES MELLITUS [None]
  - PREGNANCY [None]
